FAERS Safety Report 4870317-5 (Version None)
Quarter: 2005Q4

REPORT INFORMATION
  Report Type: 
  Country: None (occurrence: None)
  Receive Date: 20051228
  Receipt Date: 20051212
  Transmission Date: 20060501
  Serious: Yes (Death, Hospitalization)
  Sender: FDA-Public Use
  Company Number: JP_040402989

PATIENT
  Age: 69 Year
  Sex: Male
  Weight: 60.2 kg

DRUGS (6)
  1. GEMZAR [Suspect]
     Indication: NON-SMALL CELL LUNG CANCER STAGE IV
     Dosage: 1250 MG, OTHER, INTRAVENOUS
     Route: 042
     Dates: start: 20030403, end: 20030430
  2. DOCETAXEL (DOCETAXEL) [Concomitant]
  3. MOHRUS (KETOPROFEN) [Concomitant]
  4. NITROPEN (GLYCERYL TRINITRATE) [Concomitant]
  5. ISODINE (POVIDONE-IODINE) [Concomitant]
  6. ZANTAC [Concomitant]

REACTIONS (3)
  - INTERSTITIAL LUNG DISEASE [None]
  - LEUKOPENIA [None]
  - MALIGNANT NEOPLASM PROGRESSION [None]
